FAERS Safety Report 16636430 (Version 1)
Quarter: 2019Q3

REPORT INFORMATION
  Report Type: Spontaneous
  Country: US (occurrence: US)
  Receive Date: 20190726
  Receipt Date: 20190726
  Transmission Date: 20191004
  Serious: No
  Sender: FDA-Public Use
  Company Number: US-PFIZER INC-2019301254

PATIENT
  Age: 19 Year
  Sex: Male
  Weight: 70.31 kg

DRUGS (8)
  1. VITA D [COLECALCIFEROL] [Concomitant]
     Indication: VITAMIN D DEFICIENCY
     Dosage: 2000 IU, DAILY
     Dates: start: 2012
  2. ONE A DAY [MINERALS NOS;VITAMINS NOS] [Concomitant]
     Indication: IRON DEFICIENCY
  3. RAPAMUNE [Suspect]
     Active Substance: SIROLIMUS
     Dosage: 1 MG, 1X/DAY
     Route: 048
     Dates: start: 201810
  4. FISH OIL [Concomitant]
     Active Substance: FISH OIL
     Indication: PSORIASIS
     Dosage: 1000 MG, DAILY
     Dates: start: 2013
  5. ONE A DAY [MINERALS NOS;VITAMINS NOS] [Concomitant]
     Indication: VITAMIN D DEFICIENCY
     Dosage: UNK UNK, 1X/DAY
     Dates: start: 2012
  6. RAPAMUNE [Suspect]
     Active Substance: SIROLIMUS
     Dosage: 4 MG, 1X/DAY
     Dates: start: 201811
  7. RAPAMUNE [Suspect]
     Active Substance: SIROLIMUS
     Dosage: 1 MG, 1X/DAY
     Dates: start: 201811
  8. RAPAMUNE [Suspect]
     Active Substance: SIROLIMUS
     Indication: CROHN^S DISEASE
     Dosage: 5 MG, DAILY (1MG BY MOUTH DAILY 2MG, 2 BY MOUTH DAILY FOR A TOTAL OF 5MG.)
     Route: 048
     Dates: start: 201810

REACTIONS (4)
  - Product dose omission [Unknown]
  - Off label use [Unknown]
  - Product use in unapproved indication [Unknown]
  - Weight decreased [Unknown]
